FAERS Safety Report 9796822 (Version 1)
Quarter: 2014Q1

REPORT INFORMATION
  Report Type: Spontaneous
  Country: US (occurrence: US)
  Receive Date: 20140103
  Receipt Date: 20140103
  Transmission Date: 20141002
  Serious: No
  Sender: FDA-Public Use
  Company Number: US-PURDUE-USA-2013-0102695

PATIENT
  Sex: Male

DRUGS (2)
  1. TRAMADOL (SIMILAR TO NDA 21-745) [Suspect]
     Indication: PAIN MANAGEMENT
     Dosage: UNK, UNK
     Route: 065
  2. LYRICA [Suspect]
     Indication: PAIN MANAGEMENT
     Dosage: UNK UNK, UNK
     Route: 065

REACTIONS (2)
  - Somnolence [Unknown]
  - Sedation [Unknown]
